FAERS Safety Report 25865295 (Version 1)
Quarter: 2025Q3

REPORT INFORMATION
  Report Type: Spontaneous
  Country: US (occurrence: None)
  Receive Date: 20250930
  Receipt Date: 20250930
  Transmission Date: 20251020
  Serious: Yes (Disabling)
  Sender: FDA-CTU
  Company Number: None

PATIENT
  Age: 46 Year
  Sex: Female
  Weight: 67.5 kg

DRUGS (12)
  1. VYEPTI [Suspect]
     Active Substance: EPTINEZUMAB-JJMR
     Indication: Migraine prophylaxis
     Dates: start: 20250718
  2. CAPLYTA [Concomitant]
     Active Substance: LUMATEPERONE
  3. CYMBALTA [Concomitant]
     Active Substance: DULOXETINE HYDROCHLORIDE
  4. SIMVASTATIN [Concomitant]
     Active Substance: SIMVASTATIN
  5. LYRICA [Concomitant]
     Active Substance: PREGABALIN
  6. TIZANIDINE [Concomitant]
     Active Substance: TIZANIDINE
  7. LEVOTHYROXINE [Concomitant]
     Active Substance: LEVOTHYROXINE
  8. VITAMIN D [Concomitant]
     Active Substance: VITAMIN D NOS
  9. VITAMIN B COMPLEX [Concomitant]
     Active Substance: CYANOCOBALAMIN\DEXPANTHENOL\NIACINAMIDE\PYRIDOXINE HYDROCHLORIDE\RIBOFLAVIN 5^-PHOSPHATE SODIUM\THIA
  10. FISH OIL [Concomitant]
     Active Substance: FISH OIL
  11. exedrin migraine [Concomitant]
  12. IBUPROFEN [Concomitant]
     Active Substance: IBUPROFEN

REACTIONS (14)
  - Brain fog [None]
  - Dizziness [None]
  - Eye pain [None]
  - Headache [None]
  - Feeling drunk [None]
  - Facial pain [None]
  - Sensory disturbance [None]
  - Peripheral coldness [None]
  - Peripheral swelling [None]
  - Musculoskeletal stiffness [None]
  - Motor dysfunction [None]
  - Peripheral arterial occlusive disease [None]
  - Gait disturbance [None]
  - Joint stiffness [None]

NARRATIVE: CASE EVENT DATE: 20250718
